FAERS Safety Report 16044163 (Version 13)
Quarter: 2020Q1

REPORT INFORMATION
  Report Type: Report from Study
  Country: US (occurrence: US)
  Receive Date: 20190306
  Receipt Date: 20200320
  Transmission Date: 20200409
  Serious: Yes (Hospitalization)
  Sender: FDA-Public Use
  Company Number: US-ACTELION-A-US2019-187048

PATIENT
  Age: 47 Year
  Sex: Female
  Weight: 65.76 kg

DRUGS (9)
  1. VELETRI [Suspect]
     Active Substance: EPOPROSTENOL
     Dosage: UNK
     Route: 042
  2. VELETRI [Suspect]
     Active Substance: EPOPROSTENOL
     Dosage: 20.8 NG/KG, PER MIN
     Route: 042
  3. OPSUMIT [Suspect]
     Active Substance: MACITENTAN
     Indication: PULMONARY ARTERIAL HYPERTENSION
     Dosage: 10 MG, QD
     Route: 048
     Dates: start: 20190212
  4. VELETRI [Suspect]
     Active Substance: EPOPROSTENOL
     Indication: PULMONARY ARTERIAL HYPERTENSION
     Dosage: 21.1 NG/KG, PER MIN
     Route: 042
  5. ADEMPAS [Concomitant]
     Active Substance: RIOCIGUAT
  6. VELETRI [Suspect]
     Active Substance: EPOPROSTENOL
     Dosage: 16 NG/KG, PER MIN
     Route: 042
  7. VELETRI [Suspect]
     Active Substance: EPOPROSTENOL
     Dosage: 18.4 NG/KG, PER MIN
     Route: 042
  8. SILDENAFIL CITRATE. [Concomitant]
     Active Substance: SILDENAFIL CITRATE
  9. VELETRI [Suspect]
     Active Substance: EPOPROSTENOL
     Dosage: UNK
     Route: 042

REACTIONS (32)
  - Hypersomnia [Unknown]
  - Catheter site pruritus [Unknown]
  - Mixed connective tissue disease [Unknown]
  - Inflammatory marker increased [Unknown]
  - Insomnia [Not Recovered/Not Resolved]
  - Diarrhoea [Not Recovered/Not Resolved]
  - Foaming at mouth [Unknown]
  - Nasal congestion [Unknown]
  - Device leakage [Unknown]
  - Dysentery [Unknown]
  - Lacrimation increased [Unknown]
  - Eye pain [Unknown]
  - Chest pain [Unknown]
  - Device breakage [Unknown]
  - Unevaluable event [Unknown]
  - Condition aggravated [Unknown]
  - Gait disturbance [Unknown]
  - Dyspnoea exertional [Not Recovered/Not Resolved]
  - Flatulence [Not Recovered/Not Resolved]
  - Hospitalisation [Unknown]
  - Pain in jaw [Unknown]
  - Catheter site related reaction [Unknown]
  - Feeding disorder [Unknown]
  - Hypersensitivity [Unknown]
  - Stress [Unknown]
  - Back pain [Not Recovered/Not Resolved]
  - Anxiety [Unknown]
  - Rhinalgia [Unknown]
  - Catheter site erythema [Unknown]
  - Headache [Unknown]
  - Tinnitus [Unknown]
  - Urinary tract infection [Unknown]

NARRATIVE: CASE EVENT DATE: 20190224
